FAERS Safety Report 5017754-6 (Version None)
Quarter: 2006Q2

REPORT INFORMATION
  Report Type: 
  Country: None (occurrence: None)
  Receive Date: 20060530
  Receipt Date: 20050504
  Transmission Date: 20061013
  Serious: Yes (Hospitalization, Other)
  Sender: FDA-Public Use
  Company Number: 2005070450

PATIENT
  Age: 77 Year
  Sex: Female

DRUGS (12)
  1. LYRICA [Suspect]
     Indication: PAIN
     Dosage: 2 IN 1 D, ORAL
     Route: 048
  2. POLAMIDON           (METHADONE HYDROCHLORIDE) [Suspect]
     Indication: PAIN
  3. METHADONE HCL [Suspect]
     Indication: ILL-DEFINED DISORDER
  4. MORPHINE [Concomitant]
  5. AMITRIPTYLINE HCL [Concomitant]
  6. DOXEPIN HCL [Concomitant]
  7. MIRTAZAPINE [Concomitant]
  8. DOXEPIN HCL [Concomitant]
  9. MORPHINE SULFATE [Concomitant]
  10. ZOLPIDEM TARTRATE [Concomitant]
  11. METOPROLOL SUCCINATE [Concomitant]
  12. CAPTOPRIL [Concomitant]

REACTIONS (31)
  - ACUTE CORONARY SYNDROME [None]
  - AGNOSIA [None]
  - APRAXIA [None]
  - BACK PAIN [None]
  - CEREBRAL HAEMORRHAGE [None]
  - CORONARY ARTERY DISEASE [None]
  - DEPRESSED LEVEL OF CONSCIOUSNESS [None]
  - DISTURBANCE IN ATTENTION [None]
  - EMBOLISM [None]
  - GENERAL PHYSICAL HEALTH DETERIORATION [None]
  - HEMIPARESIS [None]
  - HYPERTENSIVE HEART DISEASE [None]
  - HYPERTENSIVE NEPHROPATHY [None]
  - HYPERTONIA [None]
  - HYPOREFLEXIA [None]
  - IMMOBILE [None]
  - INDIFFERENCE [None]
  - INJURY [None]
  - ISCHAEMIC STROKE [None]
  - MEMORY IMPAIRMENT [None]
  - MYOCARDIAL INFARCTION [None]
  - MYOCARDIAL ISCHAEMIA [None]
  - NERVOUS SYSTEM DISORDER [None]
  - OVERDOSE [None]
  - PAIN [None]
  - RENAL FAILURE [None]
  - RHABDOMYOLYSIS [None]
  - RHONCHI [None]
  - SOMNOLENCE [None]
  - TRANSAMINASES INCREASED [None]
  - TREATMENT NONCOMPLIANCE [None]
